FAERS Safety Report 5521932-7 (Version None)
Quarter: 2007Q4

REPORT INFORMATION
  Report Type: 
  Country: None (occurrence: None)
  Receive Date: 20071120
  Receipt Date: 20061228
  Transmission Date: 20080405
  Serious: No
  Sender: FDA-Public Use
  Company Number: US-BRISTOL-MYERS SQUIBB COMPANY-13626395

PATIENT
  Sex: Female

DRUGS (4)
  1. AVALIDE [Suspect]
  2. FLU VACCINE [Concomitant]
  3. METFORMIN HYDROCHLORIDE [Concomitant]
  4. TOPROL-XL [Concomitant]

REACTIONS (1)
  - WHITE BLOOD CELL COUNT INCREASED [None]
